FAERS Safety Report 13917408 (Version 1)
Quarter: 2017Q3

REPORT INFORMATION
  Report Type: Spontaneous
  Country: US (occurrence: US)
  Receive Date: 20170829
  Receipt Date: 20170829
  Transmission Date: 20171127
  Serious: Yes (Hospitalization, Other)
  Sender: FDA-Public Use
  Company Number: US-GLAXOSMITHKLINE-US2017129692

PATIENT
  Age: 79 Year
  Sex: Male

DRUGS (3)
  1. AMLODIPINE [Concomitant]
     Active Substance: AMLODIPINE BESYLATE
  2. BREO ELLIPTA [Suspect]
     Active Substance: FLUTICASONE FUROATE\VILANTEROL TRIFENATATE
     Indication: CHRONIC OBSTRUCTIVE PULMONARY DISEASE
     Dosage: 1 PUFF(S), QD
     Route: 055
     Dates: start: 201701
  3. OMEPRAZOLE. [Concomitant]
     Active Substance: OMEPRAZOLE

REACTIONS (12)
  - Muscular weakness [Unknown]
  - Fall [Recovering/Resolving]
  - Hip fracture [Recovering/Resolving]
  - Hip surgery [Recovering/Resolving]
  - Rehabilitation therapy [Unknown]
  - Musculoskeletal chest pain [Recovered/Resolved]
  - Physiotherapy [Unknown]
  - Arthralgia [Recovering/Resolving]
  - Dysstasia [Unknown]
  - Arthropathy [Unknown]
  - Gait disturbance [Recovering/Resolving]
  - Walking aid user [Unknown]

NARRATIVE: CASE EVENT DATE: 20170407
